FAERS Safety Report 4372010-4 (Version None)
Quarter: 2004Q2

REPORT INFORMATION
  Report Type: 
  Country: None (occurrence: None)
  Receive Date: 20040602
  Receipt Date: 20040524
  Transmission Date: 20050107
  Serious: Yes (Other)
  Sender: FDA-Public Use
  Company Number: RB-729-2004

PATIENT
  Age: 30 Year
  Sex: Male

DRUGS (1)
  1. BUPRENORPHINE HYDROCHLORIDE [Suspect]
     Indication: DRUG DEPENDENCE
     Dosage: IV
     Route: 042

REACTIONS (6)
  - CHEST PAIN [None]
  - CHILLS [None]
  - DIZZINESS [None]
  - FATIGUE [None]
  - GASTROINTESTINAL CANDIDIASIS [None]
  - MEDICATION ERROR [None]
